FAERS Safety Report 11214987 (Version 17)
Quarter: 2020Q1

REPORT INFORMATION
  Report Type: Report from Study
  Country: CA (occurrence: CA)
  Receive Date: 20150624
  Receipt Date: 20200305
  Transmission Date: 20200409
  Serious: Yes (Hospitalization, Other)
  Sender: FDA-Public Use
  Company Number: PHHY2013CA072978

PATIENT
  Age: 54 Year
  Sex: Female

DRUGS (6)
  1. DOSTINEX [Concomitant]
     Active Substance: CABERGOLINE
     Indication: PRODUCT USED FOR UNKNOWN INDICATION
     Dosage: UNK
     Route: 065
  2. SANDOSTATIN LAR DEPOT [Suspect]
     Active Substance: OCTREOTIDE ACETATE
     Indication: ACROMEGALY
     Dosage: 20 MG, QMO
     Route: 030
     Dates: start: 20090324
  3. SANDOSTATIN LAR DEPOT [Suspect]
     Active Substance: OCTREOTIDE ACETATE
     Dosage: 30 MG, QMO
     Route: 030
     Dates: start: 20110901
  4. SANDOSTATIN LAR DEPOT [Suspect]
     Active Substance: OCTREOTIDE ACETATE
     Dosage: 40 MG, QMO
     Route: 030
     Dates: start: 20120928
  5. BROMOCRIPTINE [Concomitant]
     Active Substance: BROMOCRIPTINE
     Indication: PRODUCT USED FOR UNKNOWN INDICATION
     Dosage: UNK
     Route: 065
  6. SANDOSTATIN LAR DEPOT [Suspect]
     Active Substance: OCTREOTIDE ACETATE
     Dosage: 40 MG, QMO
     Route: 030
     Dates: start: 201901

REACTIONS (18)
  - Malaise [Unknown]
  - Injection site haemorrhage [Unknown]
  - Nasopharyngitis [Not Recovered/Not Resolved]
  - Blood cholesterol increased [Unknown]
  - Nausea [Unknown]
  - Cholelithiasis [Unknown]
  - Back pain [Unknown]
  - Pyrexia [Recovered/Resolved]
  - Vomiting [Unknown]
  - Needle issue [Unknown]
  - Cholecystitis [Unknown]
  - Blood pressure increased [Not Recovered/Not Resolved]
  - Stress [Unknown]
  - Musculoskeletal chest pain [Not Recovered/Not Resolved]
  - Malaise [Recovered/Resolved]
  - Hormone level abnormal [Unknown]
  - Abdominal pain upper [Not Recovered/Not Resolved]
  - Blood pressure diastolic decreased [Unknown]

NARRATIVE: CASE EVENT DATE: 20141117
